FAERS Safety Report 18232702 (Version 1)
Quarter: 2020Q3

REPORT INFORMATION
  Report Type: Spontaneous
  Country: US (occurrence: US)
  Receive Date: 20200904
  Receipt Date: 20200904
  Transmission Date: 20201103
  Serious: No
  Sender: FDA-Public Use
  Company Number: US-009507513-2008USA009196

PATIENT
  Age: 37 Year
  Sex: Male

DRUGS (3)
  1. KEYTRUDA [Suspect]
     Active Substance: PEMBROLIZUMAB
     Indication: ADRENOCORTICAL CARCINOMA
     Dosage: WITH  LYMPHOCYTE ACTIVATION GENE?3 (LAG?3) INHIBITOR
  2. KEYTRUDA [Suspect]
     Active Substance: PEMBROLIZUMAB
     Dosage: 200 MG EVERY 3 WEEKS
     Route: 042
     Dates: start: 201802
  3. LENVATINIB [Suspect]
     Active Substance: LENVATINIB
     Indication: ADRENOCORTICAL CARCINOMA
     Dosage: UNK
     Route: 048
     Dates: start: 201802

REACTIONS (2)
  - Product use in unapproved indication [Unknown]
  - Off label use [Unknown]

NARRATIVE: CASE EVENT DATE: 201802
